FAERS Safety Report 24921162 (Version 1)
Quarter: 2025Q1

REPORT INFORMATION
  Report Type: Spontaneous
  Country: FR (occurrence: FR)
  Receive Date: 20250204
  Receipt Date: 20250204
  Transmission Date: 20250409
  Serious: Yes (Other)
  Sender: UCB
  Company Number: FR-009507513-2501FRA005392

PATIENT
  Age: 58 Year
  Sex: Male
  Weight: 70 kg

DRUGS (5)
  1. KEPPRA [Suspect]
     Active Substance: LEVETIRACETAM
     Indication: Epilepsy
     Dosage: 1 GRAM, IN THE MORNING AND IN THE EVENING (BID)
     Dates: start: 20240809, end: 202501
  2. TEMODAL [Suspect]
     Active Substance: TEMOZOLOMIDE
     Indication: Glioblastoma
     Route: 048
     Dates: start: 20241107, end: 20241215
  3. BISOPROLOL [Concomitant]
     Active Substance: BISOPROLOL
     Indication: Arterial stent insertion
     Dates: start: 202204
  4. ASPIRIN [Concomitant]
     Active Substance: ASPIRIN
     Indication: Arterial stent insertion
     Dates: start: 202204
  5. ATORVASTATIN [Concomitant]
     Active Substance: ATORVASTATIN
     Indication: Arterial stent insertion
     Dates: start: 202204

REACTIONS (1)
  - Nephropathy toxic [Unknown]

NARRATIVE: CASE EVENT DATE: 20241215
